FAERS Safety Report 9883046 (Version 1)
Quarter: 2014Q1

REPORT INFORMATION
  Report Type: Spontaneous
  Country: US (occurrence: None)
  Receive Date: 20140205
  Receipt Date: 20140205
  Transmission Date: 20141002
  Serious: Yes (Death)
  Sender: FDA-Public Use
  Company Number: IMP_07428_2014

PATIENT
  Age: 47 Year
  Sex: Male

DRUGS (5)
  1. ALPRAZOLAM [Suspect]
  2. HEROIN [Suspect]
     Dosage: DF
  3. TAPENTADOL [Suspect]
     Dosage: DF PARENTERAL
     Route: 051
  4. OXYCODONE [Suspect]
     Dosage: DF PARANTERAL
     Route: 051
  5. CODEINE [Suspect]
     Dosage: DF PARENTERAL
     Route: 051

REACTIONS (3)
  - Poisoning [None]
  - Drug abuse [None]
  - Exposure via ingestion [None]
